FAERS Safety Report 4731275-7 (Version None)
Quarter: 2005Q3

REPORT INFORMATION
  Report Type: 
  Country: None (occurrence: None)
  Receive Date: 20050729
  Receipt Date: 20050719
  Transmission Date: 20060218
  Serious: Yes (Hospitalization)
  Sender: FDA-Public Use
  Company Number: GXKR2003US00734

PATIENT
  Age: 61 Year
  Sex: 0

DRUGS (4)
  1. VERAPAMIL (NGX) (VERAPAMIL) TABLET, 240MG [Suspect]
     Indication: HYPERTENSION
     Dosage: APP. 30 X 240 MG, ORAL
     Route: 048
  2. SERTRALINE (SERTRALINE) [Concomitant]
  3. DIPHENHYDRAMINE HCL [Concomitant]
  4. TEMAZEPAM [Concomitant]

REACTIONS (8)
  - ANURIA [None]
  - BRADYCARDIA [None]
  - DRUG LEVEL ABOVE THERAPEUTIC [None]
  - HYPOTENSION [None]
  - INTENTIONAL MISUSE [None]
  - MYOCLONUS [None]
  - OLIGURIA [None]
  - OVERDOSE [None]
